FAERS Safety Report 21834245 (Version 1)
Quarter: 2023Q1

REPORT INFORMATION
  Report Type: Spontaneous
  Country: US (occurrence: None)
  Receive Date: 20230108
  Receipt Date: 20230108
  Transmission Date: 20230417
  Serious: No
  Sender: FDA-Public Use
  Company Number: US-ROCHE-2982899

PATIENT
  Sex: Male
  Weight: 190.68 kg

DRUGS (5)
  1. HEMLIBRA [Suspect]
     Active Substance: EMICIZUMAB-KXWH
     Indication: Factor VIII deficiency
     Route: 058
     Dates: start: 20210316
  2. HEMOFIL M [Concomitant]
     Active Substance: ANTIHEMOPHILIC FACTOR HUMAN
  3. TRIAMCINOLONE [Concomitant]
     Active Substance: TRIAMCINOLONE
  4. VISTARIL [Concomitant]
     Active Substance: HYDROXYZINE PAMOATE
  5. TRUVADA [Concomitant]
     Active Substance: EMTRICITABINE\TENOFOVIR DISOPROXIL FUMARATE

REACTIONS (1)
  - Weight decreased [Unknown]
